FAERS Safety Report 17498779 (Version 1)
Quarter: 2020Q1

REPORT INFORMATION
  Report Type: Spontaneous
  Country: US (occurrence: US)
  Receive Date: 20200305
  Receipt Date: 20200305
  Transmission Date: 20200409
  Serious: Yes (Death, Hospitalization)
  Sender: FDA-Public Use
  Company Number: US-TEVA-2020-US-1193387

PATIENT
  Age: 7 Year
  Sex: Female

DRUGS (12)
  1. EPINEPHRINE. [Suspect]
     Active Substance: EPINEPHRINE
     Route: 065
  2. ACETAMINPPHEN/DEXTROMETHORPHAN/GUAIFENESIN/PSEUDOEPHEDRINE [Suspect]
     Active Substance: ACETAMINOPHEN\DEXTROMETHORPHAN\GUAIFENESIN\PSEUDOEPHEDRINE
     Dosage: OVER THE 5 DAYS, HER FAMILY ADMINISTERED AN PARACETAMOL-CONTAINING OTC COUGH AND COLD PREPARATION...
     Route: 048
  3. SODIUM BICARBONATE. [Suspect]
     Active Substance: SODIUM BICARBONATE
     Route: 065
  4. N-ACETYL CYSTEINE [Suspect]
     Active Substance: ACETYLCYSTEINE
     Route: 065
  5. BISMUTH SUBSALICYLATE. [Suspect]
     Active Substance: BISMUTH SUBSALICYLATE
     Dosage: 1572 MILLIGRAM DAILY;
     Route: 048
  6. AMOXICILLIN. [Concomitant]
     Active Substance: AMOXICILLIN
     Indication: INFLUENZA
     Route: 065
  7. EPINEPHRINE. [Suspect]
     Active Substance: EPINEPHRINE
     Dosage: FOR RESUSCITATION
     Route: 065
  8. SODIUM BICARBONATE. [Suspect]
     Active Substance: SODIUM BICARBONATE
     Dosage: FOR RESUSCITATION
     Route: 065
  9. CALCIUM [Suspect]
     Active Substance: CALCIUM
     Route: 065
  10. MAGNESIUM [Suspect]
     Active Substance: MAGNESIUM
     Route: 065
  11. AMIODARONE [Suspect]
     Active Substance: AMIODARONE
     Route: 065
  12. OSELTAMIVIR [Concomitant]
     Active Substance: OSELTAMIVIR
     Indication: INFLUENZA
     Route: 065

REACTIONS (2)
  - Drug ineffective [Unknown]
  - Cardiac arrest [Fatal]
